FAERS Safety Report 7491461-2 (Version None)
Quarter: 2011Q2

REPORT INFORMATION
  Report Type: 
  Country: None (occurrence: None)
  Receive Date: 20110519
  Receipt Date: 20110510
  Transmission Date: 20111010
  Serious: Yes (Other)
  Sender: FDA-Public Use
  Company Number: PHHY2011US39610

PATIENT
  Sex: Female
  Weight: 58.957 kg

DRUGS (6)
  1. FANAPT [Suspect]
     Indication: SCHIZOPHRENIA
     Dosage: 6 MG, BID
     Route: 048
     Dates: start: 20110505, end: 20110510
  2. ABILIFY [Concomitant]
     Dosage: 10 MG, UNK
  3. AMBIEN [Concomitant]
     Dosage: UNK UKN, UNK
  4. RISPERIDONE [Concomitant]
     Dosage: 2 MG, UNK
  5. RISPERIDONE [Concomitant]
     Dosage: 3.5 MG, UNK
  6. SEROQUEL [Concomitant]
     Dosage: 80 MG, UNK

REACTIONS (2)
  - HALLUCINATION [None]
  - INSOMNIA [None]
